FAERS Safety Report 17047075 (Version 1)
Quarter: 2019Q4

REPORT INFORMATION
  Report Type: Spontaneous
  Country: CN (occurrence: CN)
  Receive Date: 20191119
  Receipt Date: 20191119
  Transmission Date: 20200122
  Serious: Yes (Other)
  Sender: FDA-Public Use
  Company Number: CN-ACCORD-161415

PATIENT
  Age: 27 Year
  Sex: Female

DRUGS (2)
  1. DOCETAXEL. [Concomitant]
     Active Substance: DOCETAXEL
     Indication: OVARIAN GERM CELL ENDODERMAL SINUS TUMOUR
     Route: 042
  2. CARBOPLATIN. [Suspect]
     Active Substance: CARBOPLATIN
     Indication: OVARIAN GERM CELL ENDODERMAL SINUS TUMOUR
     Dosage: AUC - 5
     Route: 042

REACTIONS (2)
  - Dyspnoea [Recovered/Resolved]
  - Rash [Recovered/Resolved]
